FAERS Safety Report 12475627 (Version 1)
Quarter: 2016Q2

REPORT INFORMATION
  Report Type: Spontaneous
  Country: MA (occurrence: MA)
  Receive Date: 20160617
  Receipt Date: 20160617
  Transmission Date: 20160815
  Serious: Yes (Death, Hospitalization)
  Sender: FDA-Public Use
  Company Number: MA-CELGENEUS-MAR-2016061615

PATIENT
  Age: 60 Year
  Sex: Female

DRUGS (1)
  1. AZACITIDINE. [Suspect]
     Active Substance: AZACITIDINE
     Indication: MYELODYSPLASTIC SYNDROME
     Route: 065

REACTIONS (4)
  - Shock [Unknown]
  - Urinary tract infection [Unknown]
  - Death [Fatal]
  - Sepsis [Unknown]
